FAERS Safety Report 8346766-X (Version None)
Quarter: 2012Q2

REPORT INFORMATION
  Report Type: 
  Country: None (occurrence: None)
  Receive Date: 20120509
  Receipt Date: 20120430
  Transmission Date: 20120825
  Serious: Yes (Other)
  Sender: FDA-Public Use
  Company Number: GB-SANOFI-AVENTIS-2012SA032041

PATIENT

DRUGS (4)
  1. GEMCITABINE [Suspect]
     Dosage: OVER 30 MIN ON DAY 1 OF A TWO WEEKLY CYCLE
     Route: 042
  2. IMATINIB MESYLATE [Suspect]
     Dosage: GIVEN  ON AN INTERMITTENT 7 DAYS ON TREATMENT AND 7 DAYS OFF TREATMENT (7/7) SCHEDULE
     Route: 048
  3. OXALIPLATIN [Suspect]
     Dosage: OVER 2 HOUR ON DAY 2 OF A TWO WEEKLY CYCLE
     Route: 042
  4. ANTIEMETICS AND ANTINAUSEANTS [Concomitant]

REACTIONS (1)
  - ATRIAL FLUTTER [None]
